FAERS Safety Report 8563470-3 (Version None)
Quarter: 2012Q3

REPORT INFORMATION
  Report Type: 
  Country: None (occurrence: None)
  Receive Date: 20120802
  Receipt Date: 20120720
  Transmission Date: 20120928
  Serious: Yes (Hospitalization, Disabling)
  Sender: FDA-Public Use
  Company Number: JP-ROCHE-1052845

PATIENT
  Sex: Female

DRUGS (10)
  1. PREDONINE [Concomitant]
     Route: 048
     Dates: start: 20080819, end: 20090826
  2. FOLIC ACID [Concomitant]
     Indication: RHEUMATOID ARTHRITIS
     Route: 048
     Dates: start: 20110225, end: 20110407
  3. ACTEMRA [Suspect]
     Route: 041
     Dates: start: 20100203, end: 20110302
  4. RHEUMATREX [Concomitant]
     Route: 048
     Dates: start: 20110225, end: 20110407
  5. PREDONINE [Concomitant]
     Route: 048
     Dates: start: 20100225, end: 20110407
  6. ACTEMRA [Suspect]
     Indication: RHEUMATOID ARTHRITIS
     Route: 041
     Dates: start: 20090225, end: 20100106
  7. RHEUMATREX [Concomitant]
     Indication: RHEUMATOID ARTHRITIS
     Route: 048
     Dates: start: 20020320, end: 20090826
  8. PREDONINE [Concomitant]
     Indication: RHEUMATOID ARTHRITIS
     Route: 048
     Dates: start: 20001011, end: 20040815
  9. ACTEMRA [Suspect]
     Route: 041
  10. VOLTAREN [Concomitant]
     Indication: RHEUMATOID ARTHRITIS
     Route: 054
     Dates: start: 20020401, end: 20090826

REACTIONS (3)
  - CELLULITIS [None]
  - LEG AMPUTATION [None]
  - FOOT AMPUTATION [None]
